FAERS Safety Report 5890268-7 (Version None)
Quarter: 2008Q3

REPORT INFORMATION
  Report Type: 
  Country: None (occurrence: None)
  Receive Date: 20080919
  Receipt Date: 20080912
  Transmission Date: 20090109
  Serious: Yes (Other)
  Sender: FDA-Public Use
  Company Number: GB-PFIZER INC-2008078016

PATIENT
  Sex: Male
  Weight: 67 kg

DRUGS (3)
  1. CELECOXIB [Suspect]
     Indication: PROSTATE CANCER
     Route: 048
     Dates: start: 20070815
  2. ZOLEDRONIC ACID [Suspect]
     Indication: PROSTATE CANCER
     Route: 048
     Dates: start: 20070815, end: 20080228
  3. ALL OTHER THERAPEUTIC PRODUCTS [Suspect]
     Indication: PROSTATE CANCER
     Route: 058
     Dates: start: 20070410

REACTIONS (3)
  - BONE FRAGMENTATION [None]
  - GINGIVAL INFECTION [None]
  - IMPAIRED HEALING [None]
